FAERS Safety Report 14562584 (Version 6)
Quarter: 2018Q2

REPORT INFORMATION
  Report Type: Spontaneous
  Country: BE (occurrence: BE)
  Receive Date: 20180222
  Receipt Date: 20180422
  Transmission Date: 20180711
  Serious: Yes (Other)
  Sender: FDA-Public Use
  Company Number: BE-APOTEX-2018AP006691

PATIENT
  Sex: Female

DRUGS (3)
  1. MOXIFLOXACIN APOTEX FILMOMHULDE TABLETTEN [Suspect]
     Active Substance: MOXIFLOXACIN
     Indication: LUNG INFECTION
     Dosage: 400 MG, UNK
     Route: 048
  2. PARACETAMOL [Concomitant]
     Active Substance: ACETAMINOPHEN
     Indication: PAIN MANAGEMENT
     Dosage: UNK
     Route: 065
  3. CORTISONE [Concomitant]
     Active Substance: CORTISONE\HYDROCORTISONE
     Indication: PRODUCT USED FOR UNKNOWN INDICATION
     Dosage: UNK
     Route: 065

REACTIONS (2)
  - Product colour issue [Unknown]
  - Palpitations [Recovered/Resolved]
